FAERS Safety Report 7743019-5 (Version None)
Quarter: 2011Q3

REPORT INFORMATION
  Report Type: 
  Country: None (occurrence: None)
  Receive Date: 20110912
  Receipt Date: 20110830
  Transmission Date: 20111222
  Serious: Yes (Death, Hospitalization)
  Sender: FDA-Public Use
  Company Number: US-VIROPHARMA INCORPORATED-20110808CINRY2169

PATIENT
  Sex: Female
  Weight: 77 kg

DRUGS (43)
  1. HYDRODIURIL [Concomitant]
     Indication: OEDEMA PERIPHERAL
     Route: 048
     Dates: end: 20110807
  2. VITAMIN D [Concomitant]
     Indication: PRODUCT USED FOR UNKNOWN INDICATION
     Route: 048
  3. OXYGEN [Concomitant]
     Indication: CHRONIC OBSTRUCTIVE PULMONARY DISEASE
  4. DEPAKOTE [Concomitant]
     Indication: BIPOLAR DISORDER
     Route: 048
  5. NEURONTIN [Concomitant]
     Indication: NEUROPATHY PERIPHERAL
     Route: 048
     Dates: end: 20110806
  6. PHENERGAN HCL [Concomitant]
     Indication: NAUSEA
     Route: 054
  7. XANAX [Concomitant]
     Indication: ANXIETY
     Route: 048
  8. FERROUS SULFATE TAB [Concomitant]
     Indication: ANAEMIA
     Route: 048
  9. FERROUS SULFATE TAB [Concomitant]
     Indication: IRON DEFICIENCY
  10. ALBUTEROL SULFATE AUTOHALER [Concomitant]
     Indication: ASTHMA
  11. COUMADIN [Concomitant]
     Indication: PULMONARY EMBOLISM
     Route: 048
  12. CALCIUM CARBONATE [Concomitant]
     Indication: PRODUCT USED FOR UNKNOWN INDICATION
     Route: 048
  13. COLACE [Concomitant]
     Indication: PRODUCT USED FOR UNKNOWN INDICATION
     Route: 048
  14. CYMBALTA [Concomitant]
     Indication: CHRONIC OBSTRUCTIVE PULMONARY DISEASE
  15. DUONEB [Concomitant]
     Indication: CHRONIC OBSTRUCTIVE PULMONARY DISEASE
  16. EPIPEN [Concomitant]
     Indication: PRODUCT USED FOR UNKNOWN INDICATION
     Route: 030
  17. LIDODERM [Concomitant]
     Indication: BACK PAIN
     Route: 062
  18. METAMUCIL-2 [Concomitant]
     Indication: PRODUCT USED FOR UNKNOWN INDICATION
     Route: 048
  19. METHADONE HCL [Concomitant]
     Indication: BACK PAIN
     Route: 048
  20. PERCOCET [Concomitant]
     Indication: BACK PAIN
     Route: 048
  21. TRAZODONE HCL [Concomitant]
     Indication: INSOMNIA
     Dosage: 50MG - 100MG
     Route: 048
  22. ZOFRAN [Concomitant]
     Indication: NAUSEA
     Route: 048
  23. CYMBALTA [Concomitant]
     Indication: ASTHMA
     Route: 048
  24. SINGULAIR [Concomitant]
     Indication: CHRONIC OBSTRUCTIVE PULMONARY DISEASE
     Route: 048
  25. FOLIC ACID [Concomitant]
     Indication: FOLATE DEFICIENCY
     Route: 048
  26. ALBUTEROL SULFATE AUTOHALER [Concomitant]
     Indication: CHRONIC OBSTRUCTIVE PULMONARY DISEASE
  27. ADVAIR DISKUS 100/50 [Concomitant]
     Indication: ASTHMA
  28. GLUCOSAMINE SULFATE [Concomitant]
     Indication: PRODUCT USED FOR UNKNOWN INDICATION
     Route: 048
  29. MAGNESIUM OXIDE [Concomitant]
     Indication: PRODUCT USED FOR UNKNOWN INDICATION
     Route: 048
  30. CINRYZE [Suspect]
     Dates: start: 20110728
  31. ACYCLOVIR [Concomitant]
     Indication: PRODUCT USED FOR UNKNOWN INDICATION
     Route: 048
  32. DUONEB [Concomitant]
     Indication: ASTHMA
  33. HYDRODIURIL [Concomitant]
     Indication: HYPERTENSION
  34. LEVOTHYROXINE SODIUM [Concomitant]
     Indication: HYPOTHYROIDISM
     Route: 048
  35. KLOR-CON [Concomitant]
     Indication: PRODUCT USED FOR UNKNOWN INDICATION
     Route: 048
  36. NEURONTIN [Concomitant]
     Route: 048
     Dates: start: 20110807, end: 20110810
  37. PHENERGAN HCL [Concomitant]
     Route: 048
  38. PREMARIN [Concomitant]
     Indication: HORMONE REPLACEMENT THERAPY
     Route: 048
  39. PROTONIX [Concomitant]
     Indication: GASTROOESOPHAGEAL REFLUX DISEASE
     Route: 048
  40. CINRYZE [Suspect]
     Indication: HEREDITARY ANGIOEDEMA
     Dates: end: 20110727
  41. ADVAIR DISKUS 100/50 [Concomitant]
     Indication: CHRONIC OBSTRUCTIVE PULMONARY DISEASE
  42. NEURONTIN [Concomitant]
     Dates: start: 20110811
  43. SINGULAIR [Concomitant]
     Indication: ASTHMA

REACTIONS (9)
  - HEAD INJURY [None]
  - NAUSEA [None]
  - DEATH [None]
  - WRONG TECHNIQUE IN DRUG USAGE PROCESS [None]
  - BRADYCARDIA [None]
  - SYNCOPE [None]
  - FALL [None]
  - MENTAL STATUS CHANGES [None]
  - THERAPY REGIMEN CHANGED [None]
